FAERS Safety Report 12715516 (Version 1)
Quarter: 2016Q3

REPORT INFORMATION
  Report Type: Spontaneous
  Country: US (occurrence: US)
  Receive Date: 20160906
  Receipt Date: 20160906
  Transmission Date: 20161109
  Serious: No
  Sender: FDA-Public Use
  Company Number: US-ASTRAZENECA-2016SE68670

PATIENT
  Age: 69 Year
  Sex: Male

DRUGS (5)
  1. FORADIL [Concomitant]
     Active Substance: FORMOTEROL FUMARATE
  2. PROVENTIL HFA [Suspect]
     Active Substance: ALBUTEROL SULFATE
     Route: 065
  3. SYMBICORT [Suspect]
     Active Substance: BUDESONIDE\FORMOTEROL FUMARATE DIHYDRATE
     Route: 055
  4. ASMANEX [Concomitant]
     Active Substance: MOMETASONE FUROATE
  5. PROVENTIL HFA [Suspect]
     Active Substance: ALBUTEROL SULFATE
     Route: 065

REACTIONS (4)
  - Cardiomegaly [Unknown]
  - Dyspnoea [Unknown]
  - Adverse drug reaction [Unknown]
  - Pulmonary function test decreased [Unknown]

NARRATIVE: CASE EVENT DATE: 2005
